FAERS Safety Report 6369365-8 (Version None)
Quarter: 2009Q3

REPORT INFORMATION
  Report Type: 
  Country: None (occurrence: None)
  Receive Date: 20090917
  Receipt Date: 20090901
  Transmission Date: 20100115
  Serious: Yes (Life-Threatening, Other)
  Sender: FDA-Public Use
  Company Number: MC200900344

PATIENT
  Age: 65 Year
  Sex: Male
  Weight: 105 kg

DRUGS (5)
  1. ANGIOMAX [Suspect]
     Indication: PERCUTANEOUS CORONARY INTERVENTION
     Dosage: 0.75 MG/KG, BOLUS, INTRAVENOUS 1.75 MG/KG, HR, INTRAVENOUS
     Route: 042
  2. INTEGRILIN [Suspect]
     Indication: THROMBOSIS
     Dosage: UNK, INTRACORONARY
     Route: 022
     Dates: start: 20090604, end: 20090604
  3. PLAVIX [Concomitant]
  4. ASPIRIN [Concomitant]
  5. CONTRAST MEDIA [Concomitant]

REACTIONS (15)
  - AORTIC DISSECTION [None]
  - BLOOD CHLORIDE INCREASED [None]
  - BLOOD GLUCOSE INCREASED [None]
  - CARDIAC FAILURE [None]
  - CARDIAC TAMPONADE [None]
  - CARDIOGENIC SHOCK [None]
  - CORONARY ARTERY PERFORATION [None]
  - CORONARY ARTERY THROMBOSIS [None]
  - EJECTION FRACTION DECREASED [None]
  - ELECTROCARDIOGRAM ST SEGMENT ELEVATION [None]
  - HAEMODYNAMIC INSTABILITY [None]
  - MYOCARDIAL INFARCTION [None]
  - PCO2 DECREASED [None]
  - PERICARDIAL HAEMORRHAGE [None]
  - STENT OCCLUSION [None]
